FAERS Safety Report 14272971 (Version 1)
Quarter: 2017Q4

REPORT INFORMATION
  Report Type: Report from Study
  Country: US (occurrence: US)
  Receive Date: 20171212
  Receipt Date: 20171212
  Transmission Date: 20180321
  Serious: Yes (Other)
  Sender: FDA-Public Use
  Company Number: US-GILEAD-2017-0296297

PATIENT
  Age: 70 Year
  Sex: Female

DRUGS (1)
  1. AMBRISENTAN [Suspect]
     Active Substance: AMBRISENTAN
     Indication: PULMONARY HYPERTENSION
     Dosage: 10 MG, QD
     Route: 065
     Dates: start: 20170419, end: 20171016

REACTIONS (7)
  - Peripheral swelling [Unknown]
  - Hypertension [Unknown]
  - Wrong technique in product usage process [Unknown]
  - Surgery [Unknown]
  - Red blood cell count decreased [Unknown]
  - Incorrect dose administered [Unknown]
  - Contusion [Unknown]
